FAERS Safety Report 21756731 (Version 2)
Quarter: 2023Q1

REPORT INFORMATION
  Report Type: Spontaneous
  Country: US (occurrence: None)
  Receive Date: 20221220
  Receipt Date: 20230102
  Transmission Date: 20230418
  Serious: No
  Sender: FDA-Public Use
  Company Number: 2022A352617

PATIENT
  Age: 24094 Day
  Sex: Male

DRUGS (2)
  1. BYDUREON BCISE [Suspect]
     Active Substance: EXENATIDE
     Indication: Type 2 diabetes mellitus
     Route: 058
     Dates: start: 20221020
  2. BYDUREON [Concomitant]
     Active Substance: EXENATIDE
     Route: 065

REACTIONS (6)
  - Injection site haemorrhage [Recovered/Resolved]
  - Device delivery system issue [Unknown]
  - Wrong technique in device usage process [Unknown]
  - Intentional device misuse [Recovered/Resolved with Sequelae]
  - Product administration error [Unknown]
  - Product availability issue [Unknown]

NARRATIVE: CASE EVENT DATE: 20221020
